FAERS Safety Report 5035241-6 (Version None)
Quarter: 2006Q2

REPORT INFORMATION
  Report Type: 
  Country: None (occurrence: None)
  Receive Date: 20060627
  Receipt Date: 20060616
  Transmission Date: 20061013
  Serious: Yes (Other)
  Sender: FDA-Public Use
  Company Number: PHEH2006US07936

PATIENT
  Age: 84 Year
  Sex: Male

DRUGS (1)
  1. ZELNORM [Suspect]
     Indication: ILEUS
     Dosage: 6 MG, BID
     Route: 048
     Dates: start: 20060608

REACTIONS (3)
  - BLOOD CREATININE INCREASED [None]
  - BLOOD UREA INCREASED [None]
  - RENAL IMPAIRMENT [None]
